FAERS Safety Report 9460041 (Version 1)
Quarter: 2013Q3

REPORT INFORMATION
  Report Type: Spontaneous
  Country: US (occurrence: None)
  Receive Date: 20130814
  Receipt Date: 20130814
  Transmission Date: 20140515
  Serious: Yes (Other)
  Sender: FDA-Public Use
  Company Number: None

PATIENT
  Age: 46 Year
  Sex: Male
  Weight: 102.06 kg

DRUGS (1)
  1. QUETIAPINE [Suspect]
     Indication: BIPOLAR DISORDER
     Dosage: 400 MG 1 TIMES A DAY ORAL
     Route: 048
     Dates: start: 20130718, end: 20130805

REACTIONS (2)
  - Abdominal discomfort [None]
  - Irritability [None]
